FAERS Safety Report 4546385-7 (Version None)
Quarter: 2005Q1

REPORT INFORMATION
  Report Type: 
  Country: None (occurrence: None)
  Receive Date: 20050103
  Receipt Date: 20041213
  Transmission Date: 20050727
  Serious: Yes (Other)
  Sender: FDA-Public Use
  Company Number: JP_041205352

PATIENT
  Age: 60 Year
  Sex: Female
  Weight: 52 kg

DRUGS (5)
  1. HUMACART-HUMAN NPH INSULIN (RDNA) (HUMAN INSULIN (R [Suspect]
     Indication: DIABETES MELLITUS NON-INSULIN-DEPENDENT
     Dosage: 14 U DAY
     Dates: start: 20030318
  2. BLOPRESS (CANDESARTAN CILEXETIL) [Concomitant]
  3. SIGMART (NICORANDIL) [Concomitant]
  4. KINEDAK (EPALRESTAT) [Concomitant]
  5. LORAMET (LORMETAZEPAM) [Concomitant]

REACTIONS (2)
  - BLOOD GLUCOSE INCREASED [None]
  - DIARRHOEA [None]
